FAERS Safety Report 4984371-3 (Version None)
Quarter: 2006Q2

REPORT INFORMATION
  Report Type: 
  Country: None (occurrence: None)
  Receive Date: 20060420
  Receipt Date: 20060410
  Transmission Date: 20061013
  Serious: Yes (Death)
  Sender: FDA-Public Use
  Company Number: B0420254A

PATIENT
  Sex: 0

DRUGS (1)
  1. ALBENZA [Suspect]
     Indication: STRONGYLOIDIASIS
     Dosage: 400 MG TWICE PER DAY

REACTIONS (1)
  - SUPERINFECTION [None]
